FAERS Safety Report 17826703 (Version 1)
Quarter: 2020Q2

REPORT INFORMATION
  Report Type: Spontaneous
  Country: US (occurrence: US)
  Receive Date: 20200526
  Receipt Date: 20200526
  Transmission Date: 20200714
  Serious: Yes (Death)
  Sender: FDA-Public Use
  Company Number: US-BEH-2020117692

PATIENT
  Age: 47 Year
  Sex: Female

DRUGS (13)
  1. ACETAMINOPHEN. [Concomitant]
     Active Substance: ACETAMINOPHEN
  2. DIAZEPAM. [Concomitant]
     Active Substance: DIAZEPAM
     Route: 065
  3. ZEMAIRA [Suspect]
     Active Substance: .ALPHA.1-PROTEINASE INHIBITOR HUMAN
     Indication: ALPHA-1 ANTITRYPSIN DEFICIENCY
     Dosage: 1000 MILLIGRAM, QW
     Route: 042
  4. OMEPRAZOLE. [Concomitant]
     Active Substance: OMEPRAZOLE
  5. SPIRIVA [Concomitant]
     Active Substance: TIOTROPIUM BROMIDE MONOHYDRATE
     Route: 065
  6. ADVAIR HFA [Concomitant]
     Active Substance: FLUTICASONE PROPIONATE\SALMETEROL XINAFOATE
     Route: 065
  7. PREDNISONE. [Concomitant]
     Active Substance: PREDNISONE
     Route: 065
  8. CLOPIDOGREL [Concomitant]
     Active Substance: CLOPIDOGREL BISULFATE
     Route: 065
  9. IBUPROFEN. [Concomitant]
     Active Substance: IBUPROFEN
     Route: 065
  10. HYDROCODONE [Concomitant]
     Active Substance: HYDROCODONE
     Route: 065
  11. MEDROXYPROGESTERONE [Concomitant]
     Active Substance: MEDROXYPROGESTERONE
     Route: 065
  12. TRAZODONE HYDROCHLORIDE. [Concomitant]
     Active Substance: TRAZODONE HYDROCHLORIDE
  13. CEPHALEXIN AMEL [Concomitant]
     Active Substance: CEPHALEXIN
     Route: 065

REACTIONS (1)
  - Death [Fatal]

NARRATIVE: CASE EVENT DATE: 20200428
